FAERS Safety Report 4426591-2 (Version None)
Quarter: 2004Q3

REPORT INFORMATION
  Report Type: 
  Country: None (occurrence: None)
  Receive Date: 20040811
  Receipt Date: 20040727
  Transmission Date: 20050211
  Serious: Yes (Other)
  Sender: FDA-Public Use
  Company Number: GB-JNJFOC-20040707577

PATIENT
  Age: 62 Year
  Sex: Female

DRUGS (6)
  1. DURAGESIC [Suspect]
     Dosage: 25 UG/HR, TRANSDERMAL
     Route: 062
  2. OMEPRAZOLE [Concomitant]
  3. SERTRALINE HYDROCHLORIDE [Concomitant]
  4. THYROXINE (LEVOTHYROXINE SODIUM) [Concomitant]
  5. ACETAMINOPHEN [Concomitant]
  6. DEXAMETHASONE [Concomitant]

REACTIONS (1)
  - CONVULSION [None]
